FAERS Safety Report 9157809 (Version 1)
Quarter: 2013Q1

REPORT INFORMATION
  Report Type: Spontaneous
  Country: HU (occurrence: HU)
  Receive Date: 20130312
  Receipt Date: 20130312
  Transmission Date: 20140127
  Serious: Yes (Hospitalization)
  Sender: FDA-Public Use
  Company Number: HU-PFIZER INC-2013080331

PATIENT
  Age: 72 Year
  Sex: Female

DRUGS (1)
  1. SUNITINIB MALATE [Suspect]
     Indication: RENAL CELL CARCINOMA

REACTIONS (3)
  - Urinary tract infection [Unknown]
  - Gastrointestinal disorder [Unknown]
  - Cardiovascular disorder [Unknown]
